FAERS Safety Report 13889619 (Version 1)
Quarter: 2017Q3

REPORT INFORMATION
  Report Type: Spontaneous
  Country: US (occurrence: None)
  Receive Date: 20170816
  Receipt Date: 20170816
  Transmission Date: 20171127
  Serious: Yes (Hospitalization)
  Sender: FDA-Public Use
  Company Number: None

PATIENT
  Age: 82 Year
  Sex: Female

DRUGS (16)
  1. CLARITIN [Concomitant]
     Active Substance: LORATADINE
  2. ASPIRIN. [Concomitant]
     Active Substance: ASPIRIN
  3. POTASSIUM [Concomitant]
     Active Substance: POTASSIUM
  4. VITAMIN B12 [Concomitant]
     Active Substance: CYANOCOBALAMIN
  5. XARELTO [Suspect]
     Active Substance: RIVAROXABAN
     Route: 048
  6. HYDROCHLOROT [Concomitant]
     Active Substance: HYDROCHLOROTHIAZIDE
  7. FOLIC ACID. [Concomitant]
     Active Substance: FOLIC ACID
  8. SOTALOL. [Concomitant]
     Active Substance: SOTALOL
  9. VITAMIN D3 [Concomitant]
     Active Substance: CHOLECALCIFEROL
  10. METHOTRE [Concomitant]
  11. PANTOPRAZOLE [Concomitant]
     Active Substance: PANTOPRAZOLE
  12. TRAMADOL. [Concomitant]
     Active Substance: TRAMADOL
  13. LOSARTAN. [Concomitant]
     Active Substance: LOSARTAN
  14. ATENOLOL. [Concomitant]
     Active Substance: ATENOLOL
  15. REMICADE [Suspect]
     Active Substance: INFLIXIMAB
     Indication: RHEUMATOID ARTHRITIS
     Route: 042
     Dates: start: 20150527
  16. ZOCOR [Concomitant]
     Active Substance: SIMVASTATIN

REACTIONS (2)
  - Haematochezia [None]
  - Haemoglobin decreased [None]

NARRATIVE: CASE EVENT DATE: 2017
